FAERS Safety Report 4993587-1 (Version None)
Quarter: 2006Q2

REPORT INFORMATION
  Report Type: 
  Country: None (occurrence: None)
  Receive Date: 20060504
  Receipt Date: 20060504
  Transmission Date: 20061013
  Serious: Yes (Hospitalization)
  Sender: FDA-Public Use
  Company Number: None

PATIENT
  Sex: Male
  Weight: 113.3993 kg

DRUGS (30)
  1. AVASTIN [Suspect]
     Indication: ENDOCRINE NEOPLASM
     Dosage: 570MG  Q5   Q-2 WEEKS   IV
     Route: 042
     Dates: start: 20060411, end: 20060425
  2. AVASTIN [Suspect]
     Indication: ENDOCRINE PANCREATIC DISORDER
     Dosage: 570MG  Q5   Q-2 WEEKS   IV
     Route: 042
     Dates: start: 20060411, end: 20060425
  3. AVASTIN [Suspect]
     Indication: GASTRINOMA
     Dosage: 570MG  Q5   Q-2 WEEKS   IV
     Route: 042
     Dates: start: 20060411, end: 20060425
  4. AVASTIN [Suspect]
     Indication: INSULINOMA
     Dosage: 570MG  Q5   Q-2 WEEKS   IV
     Route: 042
     Dates: start: 20060411, end: 20060425
  5. DEXAMETHASONE [Suspect]
     Indication: ENDOCRINE NEOPLASM
     Dosage: 20MG    Q 2 WEEKS    IV
     Route: 042
     Dates: start: 20060411, end: 20060425
  6. DEXAMETHASONE [Suspect]
     Indication: ENDOCRINE PANCREATIC DISORDER
     Dosage: 20MG    Q 2 WEEKS    IV
     Route: 042
     Dates: start: 20060411, end: 20060425
  7. DEXAMETHASONE [Suspect]
     Indication: GASTRINOMA
     Dosage: 20MG    Q 2 WEEKS    IV
     Route: 042
     Dates: start: 20060411, end: 20060425
  8. DEXAMETHASONE [Suspect]
     Indication: INSULINOMA
     Dosage: 20MG    Q 2 WEEKS    IV
     Route: 042
     Dates: start: 20060411, end: 20060425
  9. LORAZEPAM [Suspect]
     Indication: ENDOCRINE NEOPLASM
     Dosage: 1MG  Q 2 WEEKS  PO
     Route: 048
     Dates: start: 20060411, end: 20060425
  10. LORAZEPAM [Suspect]
     Indication: ENDOCRINE PANCREATIC DISORDER
     Dosage: 1MG  Q 2 WEEKS  PO
     Route: 048
     Dates: start: 20060411, end: 20060425
  11. LORAZEPAM [Suspect]
     Indication: GASTRINOMA
     Dosage: 1MG  Q 2 WEEKS  PO
     Route: 048
     Dates: start: 20060411, end: 20060425
  12. LORAZEPAM [Suspect]
     Indication: INSULINOMA
     Dosage: 1MG  Q 2 WEEKS  PO
     Route: 048
     Dates: start: 20060411, end: 20060425
  13. GRANISETRON      10MCG/KG [Suspect]
     Indication: ENDOCRINE NEOPLASM
     Dosage: 1200 MCG   Q 2 WEEKS   IV
     Route: 042
     Dates: start: 20060411, end: 20060425
  14. GRANISETRON      10MCG/KG [Suspect]
     Indication: ENDOCRINE PANCREATIC DISORDER
     Dosage: 1200 MCG   Q 2 WEEKS   IV
     Route: 042
     Dates: start: 20060411, end: 20060425
  15. GRANISETRON      10MCG/KG [Suspect]
     Indication: GASTRINOMA
     Dosage: 1200 MCG   Q 2 WEEKS   IV
     Route: 042
     Dates: start: 20060411, end: 20060425
  16. GRANISETRON      10MCG/KG [Suspect]
     Indication: INSULINOMA
     Dosage: 1200 MCG   Q 2 WEEKS   IV
     Route: 042
     Dates: start: 20060411, end: 20060425
  17. OXALIPLATIN    85MG/M2      SANOFI-SYNTHELABO [Suspect]
     Indication: ENDOCRINE NEOPLASM
     Dosage: 200MG   Q 2 WKS   IV
     Route: 042
     Dates: start: 20060411, end: 20060425
  18. OXALIPLATIN    85MG/M2      SANOFI-SYNTHELABO [Suspect]
     Indication: ENDOCRINE PANCREATIC DISORDER
     Dosage: 200MG   Q 2 WKS   IV
     Route: 042
     Dates: start: 20060411, end: 20060425
  19. OXALIPLATIN    85MG/M2      SANOFI-SYNTHELABO [Suspect]
     Indication: GASTRINOMA
     Dosage: 200MG   Q 2 WKS   IV
     Route: 042
     Dates: start: 20060411, end: 20060425
  20. OXALIPLATIN    85MG/M2      SANOFI-SYNTHELABO [Suspect]
     Indication: INSULINOMA
     Dosage: 200MG   Q 2 WKS   IV
     Route: 042
     Dates: start: 20060411, end: 20060425
  21. LEUCOVORIN CALCIUM [Suspect]
     Indication: ENDOCRINE NEOPLASM
     Dosage: 475MG   Q 2 WKS   IV
     Route: 042
     Dates: start: 20060411, end: 20060425
  22. LEUCOVORIN CALCIUM [Suspect]
     Indication: ENDOCRINE PANCREATIC DISORDER
     Dosage: 475MG   Q 2 WKS   IV
     Route: 042
     Dates: start: 20060411, end: 20060425
  23. LEUCOVORIN CALCIUM [Suspect]
     Indication: GASTRINOMA
     Dosage: 475MG   Q 2 WKS   IV
     Route: 042
     Dates: start: 20060411, end: 20060425
  24. LEUCOVORIN CALCIUM [Suspect]
     Indication: INSULINOMA
     Dosage: 475MG   Q 2 WKS   IV
     Route: 042
     Dates: start: 20060411, end: 20060425
  25. FLUOROURACIL [Suspect]
     Indication: ENDOCRINE NEOPLASM
     Dosage: 950MG + 2850MG   Q 2 WKS   IV
     Route: 042
     Dates: start: 20060411, end: 20060425
  26. FLUOROURACIL [Suspect]
     Indication: ENDOCRINE PANCREATIC DISORDER
     Dosage: 950MG + 2850MG   Q 2 WKS   IV
     Route: 042
     Dates: start: 20060411, end: 20060425
  27. FLUOROURACIL [Suspect]
     Indication: GASTRINOMA
     Dosage: 950MG + 2850MG   Q 2 WKS   IV
     Route: 042
     Dates: start: 20060411, end: 20060425
  28. FLUOROURACIL [Suspect]
     Indication: INSULINOMA
     Dosage: 950MG + 2850MG   Q 2 WKS   IV
     Route: 042
     Dates: start: 20060411, end: 20060425
  29. PROTONIX [Concomitant]
  30. SANDOSTATIN [Concomitant]

REACTIONS (5)
  - ASPARTATE AMINOTRANSFERASE INCREASED [None]
  - CHILLS [None]
  - DEHYDRATION [None]
  - FATIGUE [None]
  - VOMITING [None]
